FAERS Safety Report 11339930 (Version 3)
Quarter: 2015Q3

REPORT INFORMATION
  Report Type: Spontaneous
  Country: FI (occurrence: FI)
  Receive Date: 20150805
  Receipt Date: 20150918
  Transmission Date: 20151125
  Serious: Yes (Life-Threatening)
  Sender: FDA-Public Use
  Company Number: FI-PFIZER INC-2015255653

PATIENT
  Age: 44 Year
  Sex: Female

DRUGS (2)
  1. LYRICA [Suspect]
     Active Substance: PREGABALIN
     Dosage: 50 MG, 1X/DAY
     Route: 048
     Dates: start: 20150709, end: 20150727
  2. LYRICA [Suspect]
     Active Substance: PREGABALIN
     Indication: RADICULAR PAIN
     Dosage: 25 MG, 1X/DAY
     Route: 048
     Dates: start: 20150702, end: 20150708

REACTIONS (14)
  - Disorientation [Recovered/Resolved]
  - Gastrointestinal hypomotility [Recovered/Resolved]
  - Insomnia [Recovered/Resolved]
  - Self-injurious ideation [Recovered/Resolved]
  - Thirst [Recovered/Resolved]
  - Disturbance in attention [Recovered/Resolved]
  - Swelling face [Recovered/Resolved]
  - Suicidal ideation [Recovered/Resolved]
  - Initial insomnia [Recovered/Resolved]
  - Headache [Recovered/Resolved]
  - Irritability [Recovered/Resolved]
  - Feeling hot [Recovered/Resolved]
  - Urinary incontinence [Recovered/Resolved]
  - Nervousness [Recovered/Resolved]

NARRATIVE: CASE EVENT DATE: 20150704
